FAERS Safety Report 9735242 (Version 1)
Quarter: 2013Q4

REPORT INFORMATION
  Report Type: Spontaneous
  Country: US (occurrence: None)
  Receive Date: 20131204
  Receipt Date: 20131204
  Transmission Date: 20140711
  Serious: Yes (Hospitalization, Other)
  Sender: FDA-Public Use
  Company Number: SP07270

PATIENT
  Age: 70 Year
  Sex: Female
  Weight: 53.6 kg

DRUGS (3)
  1. MOVIPREP (SOLUTION) [Suspect]
     Indication: BOWEL PREPARATION
     Route: 048
     Dates: start: 20130910, end: 20130911
  2. TIMOGEL [Concomitant]
  3. PRAXIPARINE [Concomitant]

REACTIONS (2)
  - Acidosis [None]
  - Blood bicarbonate decreased [None]
